FAERS Safety Report 13022531 (Version 2)
Quarter: 2018Q1

REPORT INFORMATION
  Report Type: Spontaneous
  Country: JP (occurrence: JP)
  Receive Date: 20161213
  Receipt Date: 20180308
  Transmission Date: 20180508
  Serious: Yes (Hospitalization, Other)
  Sender: FDA-Public Use
  Company Number: JP-CELGENEUS-JPN-2016118582

PATIENT
  Age: 88 Year
  Sex: Male

DRUGS (2)
  1. REVLIMID [Suspect]
     Active Substance: LENALIDOMIDE
     Dosage: 10 MILLIGRAM
     Route: 048
     Dates: start: 20161121, end: 20161228
  2. REVLIMID [Suspect]
     Active Substance: LENALIDOMIDE
     Indication: PLASMA CELL MYELOMA
     Dosage: 10MG
     Route: 048
     Dates: start: 20160224, end: 20160726

REACTIONS (4)
  - Tuberculosis [Recovering/Resolving]
  - Febrile neutropenia [Recovering/Resolving]
  - Dyspnoea [Recovering/Resolving]
  - Tuberculosis [Recovered/Resolved]

NARRATIVE: CASE EVENT DATE: 20160726
